FAERS Safety Report 20074652 (Version 1)
Quarter: 2021Q4

REPORT INFORMATION
  Report Type: Spontaneous
  Country: FR (occurrence: FR)
  Receive Date: 20211116
  Receipt Date: 20211116
  Transmission Date: 20220304
  Serious: Yes (Life-Threatening)
  Sender: FDA-Public Use
  Company Number: None

PATIENT
  Age: 29 Year
  Sex: Male
  Weight: 65 kg

DRUGS (5)
  1. ROPIVACAINE HYDROCHLORIDE [Suspect]
     Active Substance: ROPIVACAINE HYDROCHLORIDE
     Indication: Anaesthesia
     Dosage: 0.375 PERCENT?ROPIVACAINE KABI 7,5 MG/ML, INJECTABLE SOLUTION IN AMPOULE
     Route: 050
     Dates: start: 20210525, end: 20210525
  2. KETAMINE HYDROCHLORIDE [Suspect]
     Active Substance: KETAMINE HYDROCHLORIDE
     Indication: Anaesthesia
     Dosage: 20 MG?KETAMINE PANPHARMA 50 MG/5 ML INJECTABLE SOLUTION (I.V.-I.M.)
     Route: 042
     Dates: start: 20210525, end: 20210525
  3. SUFENTANIL [Suspect]
     Active Substance: SUFENTANIL
     Indication: Anaesthesia
     Dosage: 15 MCG?SUFENTANIL MYLAN 5 MICROGRAMMES/ML, INJECTABLE SOLUTION (IV OR EPIDURAL)
     Route: 042
     Dates: start: 20210525, end: 20210525
  4. MIDAZOLAM HYDROCHLORIDE [Suspect]
     Active Substance: MIDAZOLAM HYDROCHLORIDE
     Indication: Anaesthesia
     Dosage: 2 MG?MIDAZOLAM ACCORD 1 MG/ML, INJECTABLE SOLUTION
     Route: 042
     Dates: start: 20210525, end: 20210525
  5. CEFAZOLIN SODIUM [Suspect]
     Active Substance: CEFAZOLIN SODIUM
     Indication: Shoulder operation
     Dosage: 2G?CEFAZOLINE PANPHARMA 2 G/10 ML, POWDER AND SOLUTION FOR PARENTERAL USE (IV)
     Route: 042
     Dates: start: 20210125, end: 20210125

REACTIONS (1)
  - Anaphylactic shock [Recovered/Resolved]

NARRATIVE: CASE EVENT DATE: 20210525
